FAERS Safety Report 5369857-4 (Version None)
Quarter: 2007Q2

REPORT INFORMATION
  Report Type: 
  Country: None (occurrence: None)
  Receive Date: 20070621
  Receipt Date: 20070607
  Transmission Date: 20071010
  Serious: Yes (Hospitalization, Disabling)
  Sender: FDA-Public Use
  Company Number: 2007PV000026

PATIENT
  Age: 73 Year
  Sex: Male
  Weight: 77 kg

DRUGS (6)
  1. DEPOCYT [Suspect]
     Indication: PROPHYLAXIS
     Dosage: 50 MG; X3; INTH
     Route: 037
     Dates: start: 20060724, end: 20061101
  2. MABTHERA [Concomitant]
  3. CYCLOPHOSPHAMIDE [Concomitant]
  4. ADRIAMYCIN PFS [Concomitant]
  5. ONCOVIN [Concomitant]
  6. DEXAMETHASONE 0.5MG TAB [Concomitant]

REACTIONS (1)
  - ARACHNOIDITIS [None]
